FAERS Safety Report 26164112 (Version 1)
Quarter: 2025Q4

REPORT INFORMATION
  Report Type: Spontaneous
  Country: CA (occurrence: CA)
  Receive Date: 20251216
  Receipt Date: 20251216
  Transmission Date: 20260118
  Serious: Yes (Death, Hospitalization, Disabling)
  Sender: TEVA
  Company Number: CA-TEVA-VS-3403119

PATIENT
  Age: 80 Year
  Sex: Male
  Weight: 69 kg

DRUGS (4)
  1. AMLODIPINE BESYLATE [Suspect]
     Active Substance: AMLODIPINE BESYLATE
     Indication: Product used for unknown indication
     Route: 065
  2. OMALIZUMAB [Suspect]
     Active Substance: OMALIZUMAB
     Indication: Product used for unknown indication
     Dosage: DOSE FORM: NOT SPECIFIED
     Route: 065
  3. TAMIFLU [Suspect]
     Active Substance: OSELTAMIVIR PHOSPHATE
     Indication: Product used for unknown indication
     Dosage: DOSE FORM: NOT SPECIFIED
     Route: 065
  4. CEFTRIAXONE SODIUM [Suspect]
     Active Substance: CEFTRIAXONE SODIUM
     Indication: Product used for unknown indication
     Dosage: CEFTRIAXONE SODIUM FOR INJECTION BP, ROUTE OF ADMINISTRATION: OTHER
     Route: 065

REACTIONS (32)
  - Joint injury [Fatal]
  - Tremor [Fatal]
  - Liver disorder [Fatal]
  - Somnolence [Fatal]
  - Ulcer [Fatal]
  - Lung disorder [Fatal]
  - Troponin increased [Fatal]
  - Product dose omission issue [Fatal]
  - Product use in unapproved indication [Fatal]
  - Pyrexia [Fatal]
  - Micturition urgency [Fatal]
  - Sepsis [Fatal]
  - Stress [Fatal]
  - Transient ischaemic attack [Fatal]
  - Transaminases increased [Fatal]
  - Respiratory symptom [Fatal]
  - Myasthenia gravis [Fatal]
  - Pleuritic pain [Fatal]
  - Upper respiratory tract infection [Fatal]
  - Sleep disorder [Fatal]
  - Musculoskeletal stiffness [Fatal]
  - Incorrect route of product administration [Fatal]
  - Oedema peripheral [Fatal]
  - Lower respiratory tract infection [Fatal]
  - Neuralgia [Fatal]
  - Multiple organ dysfunction syndrome [Fatal]
  - Malignant melanoma stage 0 [Fatal]
  - Intentional product misuse [Fatal]
  - Swelling [Fatal]
  - Thrombosis [Fatal]
  - Pain [Fatal]
  - Pulmonary embolism [Fatal]
